FAERS Safety Report 5269480-6 (Version None)
Quarter: 2007Q1

REPORT INFORMATION
  Report Type: 
  Country: None (occurrence: None)
  Receive Date: 20070314
  Receipt Date: 20070302
  Transmission Date: 20070707
  Serious: Yes (Hospitalization)
  Sender: FDA-Public Use
  Company Number: GXKR2007US02242

PATIENT
  Age: 48 Year
  Sex: Female

DRUGS (1)
  1. LISINOPRIL [Suspect]
     Indication: PROTEINURIA
     Dosage: 5 MG, QD

REACTIONS (4)
  - ANGIOEDEMA [None]
  - ASCITES [None]
  - GASTROINTESTINAL OEDEMA [None]
  - OBSTRUCTION GASTRIC [None]
